FAERS Safety Report 17441918 (Version 1)
Quarter: 2020Q1

REPORT INFORMATION
  Report Type: Report from Study
  Country: US (occurrence: US)
  Receive Date: 20200220
  Receipt Date: 20200220
  Transmission Date: 20200409
  Serious: Yes (Hospitalization, Other)
  Sender: FDA-Public Use
  Company Number: US-EISAI MEDICAL RESEARCH-EC-2019-058626

PATIENT
  Sex: Female

DRUGS (5)
  1. AMLODIPINE [Concomitant]
     Active Substance: AMLODIPINE BESYLATE
  2. LENVIMA [Suspect]
     Active Substance: LENVATINIB
     Indication: THYROID CANCER
     Route: 048
     Dates: start: 20190618, end: 20190629
  3. LENVIMA [Suspect]
     Active Substance: LENVATINIB
     Route: 048
     Dates: start: 20200214
  4. LENVIMA [Suspect]
     Active Substance: LENVATINIB
     Dosage: STARTED ON LENVIMA 4 MG/DAY, DOSE GRADUALLY INCREASED TO 14 MG/DAY
     Route: 048
     Dates: start: 20190630, end: 20200213
  5. IMODIUM [Concomitant]
     Active Substance: LOPERAMIDE HYDROCHLORIDE

REACTIONS (10)
  - Cough [Recovered/Resolved]
  - Peripheral swelling [Unknown]
  - Decreased appetite [Recovered/Resolved]
  - Joint swelling [Not Recovered/Not Resolved]
  - Haemoptysis [Recovered/Resolved]
  - Cardiac disorder [Unknown]
  - Diarrhoea [Not Recovered/Not Resolved]
  - Bronchitis [Recovered/Resolved]
  - Cardiac failure [Unknown]
  - Blood pressure increased [Recovered/Resolved]

NARRATIVE: CASE EVENT DATE: 2019
